FAERS Safety Report 6211920-X (Version None)
Quarter: 2009Q2

REPORT INFORMATION
  Report Type: 
  Country: None (occurrence: None)
  Receive Date: 20090529
  Receipt Date: 20090515
  Transmission Date: 20091009
  Serious: Yes (Hospitalization)
  Sender: FDA-Public Use
  Company Number: 2009S1008657

PATIENT
  Age: 65 Year
  Sex: Female
  Weight: 92.9874 kg

DRUGS (6)
  1. FENTANYL TRANSDERMAL SYSTEM [Suspect]
     Indication: BACK PAIN
     Dosage: 25 UG;EVERY HOUR;TRANSDERMA
     Route: 062
     Dates: start: 20090101, end: 20090301
  2. FENTANYL TRANSDERMAL SYSTEM [Suspect]
     Indication: BACK PAIN
     Dosage: 50 UG;EVERY HOUR;TRANSDERMAL
     Route: 062
     Dates: start: 20090301, end: 20090401
  3. FENTANYL TRANSDERMAL SYSTEM [Suspect]
     Indication: BACK PAIN
     Dosage: 75 UG;EVERY HOUR;TRANSDERMAL
     Route: 062
     Dates: start: 20090401, end: 20090515
  4. NEURONTIN [Suspect]
     Indication: NEURALGIA
     Dosage: 300 MG;3 TIMES A DAY;ORAL
     Route: 048
     Dates: start: 20070101, end: 20090401
  5. CELEXA [Concomitant]
  6. SYNTHROID [Concomitant]

REACTIONS (11)
  - ANXIETY [None]
  - BACK PAIN [None]
  - CONDITION AGGRAVATED [None]
  - CRYING [None]
  - DEVICE ADHESION ISSUE [None]
  - DRUG EFFECT DECREASED [None]
  - DRUG WITHDRAWAL SYNDROME [None]
  - INTESTINAL OBSTRUCTION [None]
  - NERVOUSNESS [None]
  - PANIC ATTACK [None]
  - SUICIDAL IDEATION [None]
